FAERS Safety Report 9129221 (Version 1)
Quarter: 2013Q1

REPORT INFORMATION
  Report Type: Other
  Country: US (occurrence: US)
  Receive Date: 20130125
  Receipt Date: 20130125
  Transmission Date: 20140127
  Serious: Yes (Death)
  Sender: FDA-Public Use
  Company Number: US-FRI-1000042111

PATIENT
  Age: 56 Year
  Sex: Female

DRUGS (11)
  1. CITALOPRAM [Suspect]
  2. CYCLIC ANTIDEPRESSANT NOS [Suspect]
  3. LISINOPRIL [Suspect]
  4. CLONAZEPAM [Suspect]
  5. GABAPENTIN [Suspect]
  6. CYCLOBENZAPRINE [Suspect]
  7. ACETAMINOPHEN/BUTALBITAL/CAFFEINE [Suspect]
  8. ZOLPIDEM [Suspect]
  9. SUMATRIPTAN [Suspect]
  10. DRUG NOS [Suspect]
  11. NAPROXEN [Suspect]

REACTIONS (1)
  - Completed suicide [Fatal]
